FAERS Safety Report 4423048-X (Version None)
Quarter: 2004Q3

REPORT INFORMATION
  Report Type: 
  Country: None (occurrence: None)
  Receive Date: 20040809
  Receipt Date: 20040809
  Transmission Date: 20050211
  Serious: No
  Sender: FDA-Public Use
  Company Number: None

PATIENT
  Age: 69 Year
  Sex: Male

DRUGS (1)
  1. PHENYTOIN [Suspect]
     Indication: CONVULSION
     Dosage: 200 MG BID
     Dates: start: 20040202, end: 20040424

REACTIONS (3)
  - DRUG LEVEL INCREASED [None]
  - EXTRADURAL HAEMATOMA [None]
  - FALL [None]
